FAERS Safety Report 7895453-0 (Version None)
Quarter: 2011Q4

REPORT INFORMATION
  Report Type: 
  Country: None (occurrence: None)
  Receive Date: 20111106
  Receipt Date: 20110828
  Transmission Date: 20120403
  Serious: No
  Sender: FDA-Public Use
  Company Number: US-AMGEN-USASP2011043973

PATIENT
  Age: 43 Year
  Sex: Female

DRUGS (1)
  1. ENBREL [Suspect]
     Indication: RHEUMATOID ARTHRITIS
     Dosage: 50 MG, QWK
     Dates: start: 20110216

REACTIONS (9)
  - MACULE [None]
  - HEADACHE [None]
  - INJECTION SITE ERYTHEMA [None]
  - RHINORRHOEA [None]
  - BLOOD GLUCOSE INCREASED [None]
  - INJECTION SITE SWELLING [None]
  - EAR PAIN [None]
  - NASAL CONGESTION [None]
  - INJECTION SITE PRURITUS [None]
